FAERS Safety Report 7495896-3 (Version None)
Quarter: 2011Q2

REPORT INFORMATION
  Report Type: 
  Country: None (occurrence: None)
  Receive Date: 20110523
  Receipt Date: 20110519
  Transmission Date: 20111010
  Serious: Yes (Other)
  Sender: FDA-Public Use
  Company Number: FR-BRISTOL-MYERS SQUIBB COMPANY-14965628

PATIENT
  Age: 40 Year
  Sex: Male

DRUGS (9)
  1. SUSTIVA [Suspect]
     Dates: start: 20090630, end: 20100101
  2. MYOLASTAN [Concomitant]
  3. TRUVADA [Suspect]
     Indication: HIV TEST POSITIVE
     Dates: start: 20080214, end: 20090921
  4. NORVIR [Suspect]
     Indication: HIV TEST POSITIVE
     Dates: start: 20080214, end: 20090620
  5. COMBIVIR [Concomitant]
  6. NAPROXEN [Concomitant]
     Indication: PAIN
     Dates: start: 20091101
  7. MIOREL [Concomitant]
  8. CARNITINE, L- [Concomitant]
  9. REYATAZ [Suspect]
     Indication: HIV TEST POSITIVE
     Dates: start: 20080214, end: 20090620

REACTIONS (2)
  - OSTEONECROSIS [None]
  - DRUG RESISTANCE [None]
